FAERS Safety Report 18355594 (Version 3)
Quarter: 2021Q1

REPORT INFORMATION
  Report Type: Report from Study
  Country: BR (occurrence: BR)
  Receive Date: 20201007
  Receipt Date: 20210109
  Transmission Date: 20210419
  Serious: Yes (Other)
  Sender: FDA-Public Use
  Company Number: NVSC2020BR268051

PATIENT
  Age: 9 Year
  Sex: Male
  Weight: 29 kg

DRUGS (4)
  1. RITALINA LA [Suspect]
     Active Substance: METHYLPHENIDATE HYDROCHLORIDE
     Indication: AUTISM SPECTRUM DISORDER
     Dosage: 40 MG, QD (COULD NOT CLARIFY THE START AND STOP DATE)
     Route: 048
  2. RITALINA LA [Suspect]
     Active Substance: METHYLPHENIDATE HYDROCHLORIDE
     Indication: ATTENTION DEFICIT HYPERACTIVITY DISORDER
     Dosage: 30 MG, QD (COULD NOT CLARIFY THE START AND STOP DATE)
     Route: 048
  3. RITALINA LA [Suspect]
     Active Substance: METHYLPHENIDATE HYDROCHLORIDE
     Dosage: 20 MG, QD (STARTED 12 DAYS AGO)
     Route: 048
  4. RISPERIDON [Concomitant]
     Active Substance: RISPERIDONE
     Indication: SEDATIVE THERAPY
     Dosage: 1 DF(1 TABLET AT SLEEPING EVERY DAY, SOMETIMES HALF IN MORNING WHEN THE PATIENT IS AGITATED)
     Route: 048

REACTIONS (8)
  - Feeling abnormal [Recovered/Resolved]
  - Diarrhoea [Recovered/Resolved]
  - Nervousness [Recovered/Resolved]
  - Autism spectrum disorder [Unknown]
  - Agitation [Recovered/Resolved]
  - Dizziness [Recovered/Resolved]
  - Speech disorder [Unknown]
  - Tongue disorder [Recovered/Resolved]

NARRATIVE: CASE EVENT DATE: 202009
